FAERS Safety Report 4940903-2 (Version None)
Quarter: 2006Q1

REPORT INFORMATION
  Report Type: 
  Country: None (occurrence: None)
  Receive Date: 20060313
  Receipt Date: 20051212
  Transmission Date: 20060701
  Serious: Yes (Other)
  Sender: FDA-Public Use
  Company Number: CH-JNJFOC-20051203207

PATIENT
  Age: 70 Year
  Sex: Female

DRUGS (11)
  1. REMINYL [Suspect]
     Route: 048
  2. REMINYL [Suspect]
     Route: 048
  3. REMINYL [Suspect]
     Route: 048
  4. METFIN [Concomitant]
     Route: 048
  5. LESCOL [Concomitant]
     Route: 048
  6. ISOPTIN [Concomitant]
     Route: 048
  7. CIPRALEX [Concomitant]
  8. ASPIRIN [Concomitant]
     Route: 048
  9. ACTONEL [Concomitant]
     Route: 048
  10. NOVOMIX [Concomitant]
     Route: 058
  11. LEVEMIR [Concomitant]
     Route: 058

REACTIONS (1)
  - FAECAL INCONTINENCE [None]
